FAERS Safety Report 8266563-3 (Version None)
Quarter: 2012Q2

REPORT INFORMATION
  Report Type: 
  Country: None (occurrence: None)
  Receive Date: 20120406
  Receipt Date: 20120321
  Transmission Date: 20120825
  Serious: Yes (Hospitalization)
  Sender: FDA-Public Use
  Company Number: PT-BAXTER-2011BH026963

PATIENT
  Age: 62 Year
  Sex: Male

DRUGS (8)
  1. EXTRANEAL [Suspect]
     Route: 033
     Dates: start: 20080501
  2. PHYSIONEAL 40 GLUCOSE 1,36% P/V / 13,6 MG/ML [Suspect]
     Route: 033
     Dates: start: 20080601, end: 20110826
  3. EXTRANEAL [Suspect]
  4. EXTRANEAL [Suspect]
     Route: 033
     Dates: start: 20080601, end: 20110826
  5. PHYSIONEAL 40 GLUCOSE 1,36% P/V / 13,6 MG/ML [Suspect]
     Route: 033
     Dates: start: 20080501
  6. EXTRANEAL [Suspect]
  7. EXTRANEAL [Suspect]
  8. EXTRANEAL [Suspect]

REACTIONS (21)
  - PROCEDURAL PAIN [None]
  - BLOOD UREA INCREASED [None]
  - ANXIETY [None]
  - INSOMNIA [None]
  - NEURODERMATITIS [None]
  - HYPERURICAEMIA [None]
  - ABDOMINAL DISTENSION [None]
  - HYPERPHOSPHATAEMIA [None]
  - HYPERPARATHYROIDISM [None]
  - ULTRAFILTRATION FAILURE [None]
  - DIARRHOEA [None]
  - FLUID OVERLOAD [None]
  - PERITONITIS BACTERIAL [None]
  - MUSCLE SPASMS [None]
  - ABDOMINAL PAIN [None]
  - COUGH [None]
  - ASTHENIA [None]
  - OEDEMA PERIPHERAL [None]
  - CATHETER SITE INFECTION [None]
  - NAUSEA [None]
  - NEPHROLITHIASIS [None]
